FAERS Safety Report 4597545-0 (Version None)
Quarter: 2005Q1

REPORT INFORMATION
  Report Type: 
  Country: None (occurrence: None)
  Receive Date: 20050228
  Receipt Date: 20050228
  Transmission Date: 20050727
  Serious: Yes (Other)
  Sender: FDA-Public Use
  Company Number: None

PATIENT
  Age: 64 Year
  Sex: Male
  Weight: 64.4108 kg

DRUGS (2)
  1. CLAFORAN [Suspect]
     Indication: PNEUMONIA
     Dosage: 1 GM IV  Q 8 HRS
     Route: 042
  2. CLINDAMYCIN IV [Suspect]
     Indication: PNEUMONIA
     Dosage: 600 MG  IV  Q 8 HOURS
     Route: 042

REACTIONS (1)
  - RASH GENERALISED [None]
